FAERS Safety Report 4457739-1 (Version None)
Quarter: 2004Q3

REPORT INFORMATION
  Report Type: 
  Country: None (occurrence: None)
  Receive Date: 20040922
  Receipt Date: 20040909
  Transmission Date: 20050211
  Serious: Yes (Death)
  Sender: FDA-Public Use
  Company Number: 2004064668

PATIENT
  Age: 58 Year
  Sex: Male

DRUGS (7)
  1. VIAGRA [Suspect]
     Indication: ILL-DEFINED DISORDER
     Dosage: 50 MG (50 MG, 1 IN 1 D), ORAL
     Route: 048
     Dates: start: 20040101, end: 20040401
  2. ISOSORBIDE MONOITRATE (ISOSOBRBIDE MONONITRATE) [Concomitant]
  3. ISOSORBIDE DINITRATE (ISOSRIBIDE DINITRATE) [Concomitant]
  4. EBASTINE [Concomitant]
  5. ALL OTHER THERAPEUTIC PRODUCTS (ALL OTHER THERAPEUTIC PRODUCTS) [Concomitant]
  6. AMLODIPINE [Concomitant]
  7. ASPIRIN [Concomitant]

REACTIONS (6)
  - ACUTE MYOCARDIAL INFARCTION [None]
  - CARDIOMEGALY [None]
  - CHOLELITHIASIS [None]
  - MYOCARDIAL FIBROSIS [None]
  - NEPHROSCLEROSIS [None]
  - SUDDEN DEATH [None]
